FAERS Safety Report 6931565-3 (Version None)
Quarter: 2010Q3

REPORT INFORMATION
  Report Type: 
  Country: None (occurrence: None)
  Receive Date: 20100819
  Receipt Date: 20100805
  Transmission Date: 20110219
  Serious: Yes (Hospitalization)
  Sender: FDA-Public Use
  Company Number: US-ELI_LILLY_AND_COMPANY-US201008002426

PATIENT
  Sex: Female

DRUGS (1)
  1. FORTEO [Suspect]
     Dates: end: 20100703

REACTIONS (2)
  - HEARING IMPAIRED [None]
  - INTESTINAL OBSTRUCTION [None]
